FAERS Safety Report 6613835-1 (Version None)
Quarter: 2010Q1

REPORT INFORMATION
  Report Type: 
  Country: None (occurrence: None)
  Receive Date: 20100225
  Receipt Date: 20100215
  Transmission Date: 20100710
  Serious: Yes (Hospitalization, Disabling)
  Sender: FDA-Public Use
  Company Number: 507015

PATIENT
  Age: 55 Year
  Sex: Female
  Weight: 121 kg

DRUGS (3)
  1. GENTAMICIN SULFATE [Suspect]
     Indication: DRUG USE FOR UNKNOWN INDICATION
     Dosage: 400 MG, 1 DAY, INTRAVENOUS
     Route: 042
  2. (ADVIIR) [Concomitant]
  3. VENTOLIN [Concomitant]

REACTIONS (3)
  - ATAXIA [None]
  - BLOOD CREATININE INCREASED [None]
  - MALAISE [None]
